FAERS Safety Report 9319997 (Version 1)
Quarter: 2013Q2

REPORT INFORMATION
  Report Type: Spontaneous
  Country: US (occurrence: US)
  Receive Date: 20130530
  Receipt Date: 20130530
  Transmission Date: 20140414
  Serious: Yes (Other)
  Sender: FDA-Public Use
  Company Number: US-ELI_LILLY_AND_COMPANY-US201302004758

PATIENT
  Age: 65 Year
  Sex: Female

DRUGS (2)
  1. FORTEO [Suspect]
     Indication: OSTEOPOROSIS
     Dosage: 20 UG, QD
  2. FORTEO [Suspect]
     Dosage: 20 UG, QD

REACTIONS (7)
  - Myocardial infarction [Unknown]
  - Periorbital contusion [Unknown]
  - Fall [Unknown]
  - Concussion [Unknown]
  - Face injury [Unknown]
  - Arthralgia [Unknown]
  - Drug dose omission [Unknown]
